FAERS Safety Report 4597631-5 (Version None)
Quarter: 2005Q1

REPORT INFORMATION
  Report Type: 
  Country: None (occurrence: None)
  Receive Date: 20050303
  Receipt Date: 20050210
  Transmission Date: 20050727
  Serious: Yes (Other)
  Sender: FDA-Public Use
  Company Number: US-GLAXOSMITHKLINE-A0544971A

PATIENT
  Age: 45 Year
  Sex: Male
  Weight: 90.9 kg

DRUGS (3)
  1. LAMICTAL [Suspect]
     Indication: BIPOLAR DISORDER
     Route: 048
     Dates: start: 20050101, end: 20050201
  2. NEURONTIN [Suspect]
     Dosage: 3000MG PER DAY
     Route: 065
  3. PENICILLIN [Suspect]
     Indication: DENTAL DISORDER PROPHYLAXIS
     Route: 065

REACTIONS (6)
  - BLISTER [None]
  - CONVULSION [None]
  - ERYTHEMA [None]
  - ORAL MUCOSAL BLISTERING [None]
  - RASH [None]
  - SWELLING FACE [None]
